FAERS Safety Report 17228702 (Version 2)
Quarter: 2021Q4

REPORT INFORMATION
  Report Type: Spontaneous
  Country: US (occurrence: US)
  Receive Date: 20200103
  Receipt Date: 20211022
  Transmission Date: 20220303
  Serious: No
  Sender: FDA-Public Use
  Company Number: US-VERTEX PHARMACEUTICALS-2019-013602

PATIENT
  Age: 46 Year
  Sex: Female

DRUGS (1)
  1. TRIKAFTA [Suspect]
     Active Substance: ELEXACAFTOR\IVACAFTOR\TEZACAFTOR
     Indication: Cystic fibrosis
     Dosage: BID (AT EVERY 12 HRS)
     Route: 048
     Dates: start: 20191209

REACTIONS (5)
  - Fatigue [Unknown]
  - Oropharyngeal pain [Unknown]
  - Headache [Unknown]
  - Rash papular [Recovered/Resolved]
  - Rash [Recovered/Resolved]

NARRATIVE: CASE EVENT DATE: 20191201
